FAERS Safety Report 25194491 (Version 1)
Quarter: 2025Q2

REPORT INFORMATION
  Report Type: Report from Study
  Country: CA (occurrence: CA)
  Receive Date: 20250414
  Receipt Date: 20250414
  Transmission Date: 20250716
  Serious: Yes (Other)
  Sender: ABBVIE
  Company Number: CA-ABBVIE-6222397

PATIENT
  Sex: Male

DRUGS (1)
  1. RINVOQ [Suspect]
     Active Substance: UPADACITINIB
     Indication: Crohn^s disease
     Dosage: FROM STRENGTH 30 MILLIGRAM
     Route: 048

REACTIONS (3)
  - Small intestinal anastomosis [Unknown]
  - Arthritis enteropathic [Unknown]
  - Fistula [Unknown]
